FAERS Safety Report 9473700 (Version 2)
Quarter: 2013Q3

REPORT INFORMATION
  Report Type: Spontaneous
  Country: US (occurrence: US)
  Receive Date: 20130823
  Receipt Date: 20130823
  Transmission Date: 20140515
  Serious: No
  Sender: FDA-Public Use
  Company Number: US-BRISTOL-MYERS SQUIBB COMPANY-16913493

PATIENT
  Age: 43 Year
  Sex: Female

DRUGS (15)
  1. SPRYCEL [Suspect]
     Indication: CHRONIC MYELOID LEUKAEMIA
     Dates: start: 2012
  2. LORTAB [Suspect]
     Dosage: 1DF: 10/325MG 1 TABQ4-6 HRS
  3. LAMICTAL [Suspect]
     Dosage: EVERY MRNG
  4. MACROBID [Suspect]
  5. PROTONIX [Suspect]
  6. AMBIEN [Concomitant]
  7. BENADRYL [Concomitant]
     Dosage: 25 QHS
  8. BENAZEPRIL HCL + HCTZ [Concomitant]
  9. CARVEDILOL [Concomitant]
  10. GLUCOPHAGE [Concomitant]
  11. LEVOXYL [Concomitant]
  12. PRIMIDONE [Concomitant]
  13. COMPAZINE [Concomitant]
  14. XANAX [Concomitant]
  15. IBUPROFEN [Concomitant]

REACTIONS (1)
  - Abdominal discomfort [Recovering/Resolving]
